FAERS Safety Report 8792852 (Version 1)
Quarter: 2012Q4

REPORT INFORMATION
  Report Type: 
  Country: US (occurrence: US)
  Receive Date: 20120918
  Receipt Date: 20120918
  Transmission Date: 20130627
  Serious: Yes (Hospitalization)
  Sender: FDA-Public Use
  Company Number: US-ELI_LILLY_AND_COMPANY-US201209002406

PATIENT
  Sex: Female

DRUGS (8)
  1. FORTEO [Suspect]
     Indication: OSTEOPOROSIS
     Dosage: 20 ug, qd
     Dates: start: 201202
  2. DULOXETINE HYDROCHLORIDE [Concomitant]
     Dosage: UNK, qd
  3. GABAPENTIN [Concomitant]
     Dosage: UNK, qd
  4. ZOLAPIN [Concomitant]
     Dosage: UNK, qd
  5. ADVAIR [Concomitant]
     Dosage: UNK, qd
  6. PREDNISONE [Concomitant]
     Dosage: UNK, qd
  7. SINGULAIR [Concomitant]
     Dosage: UNK, qd
  8. METFORMIN [Concomitant]
     Dosage: UNK, qd

REACTIONS (8)
  - Dehydration [Unknown]
  - Upper respiratory tract infection [Unknown]
  - Decreased appetite [Unknown]
  - Herpes zoster [Unknown]
  - Malaise [Unknown]
  - Drug dose omission [Unknown]
  - Pain [Unknown]
  - Confusional state [Unknown]
